FAERS Safety Report 9955046 (Version 1)
Quarter: 2014Q1

REPORT INFORMATION
  Report Type: Spontaneous
  Country: PT (occurrence: PT)
  Receive Date: 20140304
  Receipt Date: 20140304
  Transmission Date: 20141002
  Serious: Yes (Life-Threatening)
  Sender: FDA-Public Use
  Company Number: PT-ASTRAZENECA-2014SE15105

PATIENT
  Sex: Male

DRUGS (1)
  1. BRILIQUE [Suspect]
     Indication: ACUTE MYOCARDIAL INFARCTION
     Route: 048

REACTIONS (2)
  - No adverse event [Unknown]
  - Drug dose omission [Unknown]
